FAERS Safety Report 25146871 (Version 2)
Quarter: 2025Q2

REPORT INFORMATION
  Report Type: Spontaneous
  Country: US (occurrence: US)
  Receive Date: 20250401
  Receipt Date: 20250423
  Transmission Date: 20250717
  Serious: No
  Sender: MERZ
  Company Number: US-MRZWEB-2025030000182

PATIENT

DRUGS (3)
  1. XEOMIN [Suspect]
     Active Substance: INCOBOTULINUMTOXINA
     Indication: Skin wrinkling
     Dosage: 32 INTERNATIONAL UNIT
     Route: 030
     Dates: start: 20250208, end: 20250208
  2. XEOMIN [Suspect]
     Active Substance: INCOBOTULINUMTOXINA
     Indication: Skin wrinkling
     Dosage: 32 INTERNATIONAL UNIT
     Dates: start: 2025, end: 2025
  3. BOTULINUM TOXIN NOS [Concomitant]
     Active Substance: BOTULINUM TOXIN NOS
     Dates: start: 2023, end: 2023

REACTIONS (3)
  - Drug ineffective [Not Recovered/Not Resolved]
  - Underdose [Unknown]
  - Product preparation issue [Unknown]

NARRATIVE: CASE EVENT DATE: 20250201
